FAERS Safety Report 9110897 (Version 1)
Quarter: 2013Q1

REPORT INFORMATION
  Report Type: Spontaneous
  Country: US (occurrence: US)
  Receive Date: 20130219
  Receipt Date: 20130219
  Transmission Date: 20140127
  Serious: No
  Sender: FDA-Public Use
  Company Number: US-BRISTOL-MYERS SQUIBB COMPANY-16371759

PATIENT
  Age: 52 Year
  Sex: Female
  Weight: 68.93 kg

DRUGS (1)
  1. ORENCIA [Suspect]
     Dosage: SECOND INJECTION ON 21 JAN 2012
     Route: 058
     Dates: start: 20120114

REACTIONS (4)
  - Weight increased [Unknown]
  - Pain [Unknown]
  - Local swelling [Unknown]
  - Joint swelling [Unknown]
